FAERS Safety Report 4318031-9 (Version None)
Quarter: 2004Q1

REPORT INFORMATION
  Report Type: 
  Country: None (occurrence: None)
  Receive Date: 20040317
  Receipt Date: 20040303
  Transmission Date: 20041129
  Serious: Yes (Life-Threatening, Hospitalization)
  Sender: FDA-Public Use
  Company Number: 200410751JP

PATIENT
  Age: 47 Year
  Sex: Male
  Weight: 58 kg

DRUGS (4)
  1. ARAVA [Suspect]
     Indication: RHEUMATOID ARTHRITIS
     Route: 048
     Dates: start: 20040116, end: 20040128
  2. PREDONINE [Concomitant]
     Route: 048
  3. VOLTAREN - SLOW RELEASE ^CIBA-GEIGY^ [Concomitant]
     Route: 048
  4. CYTOTEC [Concomitant]
     Route: 048

REACTIONS (12)
  - ALANINE AMINOTRANSFERASE INCREASED [None]
  - ALOPECIA [None]
  - ASPARTATE AMINOTRANSFERASE INCREASED [None]
  - BLOOD ALKALINE PHOSPHATASE INCREASED [None]
  - BLOOD CREATINE PHOSPHOKINASE MB ABNORMAL [None]
  - BLOOD LACTATE DEHYDROGENASE INCREASED [None]
  - GAMMA-GLUTAMYLTRANSFERASE INCREASED [None]
  - HEPATIC FUNCTION ABNORMAL [None]
  - LEUKOPENIA [None]
  - PYREXIA [None]
  - RASH [None]
  - THROMBOCYTOPENIA [None]
